FAERS Safety Report 23346384 (Version 1)
Quarter: 2023Q4

REPORT INFORMATION
  Report Type: Spontaneous
  Country: US (occurrence: None)
  Receive Date: 20231227
  Receipt Date: 20231227
  Transmission Date: 20240110
  Serious: Yes (Other)
  Sender: FDA-Public Use
  Company Number: None

PATIENT
  Age: 65 Year
  Sex: Male
  Weight: 121.5 kg

DRUGS (2)
  1. VYVGART HYTRULO [Suspect]
     Active Substance: EFGARTIGIMOD ALFA\HYALURONIDASE-QVFC
     Indication: Myasthenia gravis
     Dosage: OTHER FREQUENCY : WEEKLY;?
     Route: 058
     Dates: start: 20231213
  2. VYVGART HYTRULO [Concomitant]
     Active Substance: EFGARTIGIMOD ALFA\HYALURONIDASE-QVFC
     Dates: start: 20231213

REACTIONS (1)
  - Injection site rash [None]

NARRATIVE: CASE EVENT DATE: 20231227
